FAERS Safety Report 19079651 (Version 4)
Quarter: 2021Q4

REPORT INFORMATION
  Report Type: Spontaneous
  Country: US (occurrence: US)
  Receive Date: 20210331
  Receipt Date: 20211020
  Transmission Date: 20220303
  Serious: Yes (Hospitalization, Other)
  Sender: FDA-Public Use
  Company Number: 2021A231660

PATIENT
  Age: 20251 Day
  Sex: Male
  Weight: 122.5 kg

DRUGS (56)
  1. FARXIGA [Suspect]
     Active Substance: DAPAGLIFLOZIN PROPANEDIOL
     Indication: Type 2 diabetes mellitus
     Route: 048
     Dates: start: 20140902
  2. FARXIGA [Suspect]
     Active Substance: DAPAGLIFLOZIN PROPANEDIOL
     Indication: Weight decreased
     Route: 048
     Dates: start: 20140902
  3. FARXIGA [Suspect]
     Active Substance: DAPAGLIFLOZIN PROPANEDIOL
     Indication: Blood pressure decreased
     Route: 048
     Dates: start: 20140902
  4. FARXIGA [Suspect]
     Active Substance: DAPAGLIFLOZIN PROPANEDIOL
     Indication: Type 2 diabetes mellitus
     Route: 048
     Dates: start: 20161126
  5. FARXIGA [Suspect]
     Active Substance: DAPAGLIFLOZIN PROPANEDIOL
     Indication: Weight decreased
     Route: 048
     Dates: start: 20161126
  6. FARXIGA [Suspect]
     Active Substance: DAPAGLIFLOZIN PROPANEDIOL
     Indication: Blood pressure decreased
     Route: 048
     Dates: start: 20161126
  7. GLUCOPHAGE [Concomitant]
     Active Substance: METFORMIN HYDROCHLORIDE
     Route: 048
     Dates: start: 20161126
  8. PRAVACHOL [Concomitant]
     Active Substance: PRAVASTATIN SODIUM
     Route: 048
     Dates: start: 20161126
  9. CINNAMON [Concomitant]
     Active Substance: CINNAMON
     Route: 065
     Dates: start: 20161126
  10. PRINIVIL [Concomitant]
     Active Substance: LISINOPRIL
     Route: 048
     Dates: start: 20161126
  11. TENORMIN [Concomitant]
     Active Substance: ATENOLOL
  12. AMARYL [Concomitant]
     Active Substance: GLIMEPIRIDE
     Route: 048
     Dates: start: 20161126
  13. AUGMENTIN [Concomitant]
     Active Substance: AMOXICILLIN\CLAVULANATE POTASSIUM
  14. ROXICODONE [Concomitant]
     Active Substance: OXYCODONE HYDROCHLORIDE
     Dosage: 5.0MG EVERY 4 - 6 HOURS
     Route: 048
     Dates: start: 20161126
  15. ATROPINE [Concomitant]
     Active Substance: ATROPINE
  16. CALCIUM GLUCONATE [Concomitant]
     Active Substance: CALCIUM GLUCONATE
  17. DEXTROSE [Concomitant]
     Active Substance: DEXTROSE
  18. DOCUSATE SODIUM [Concomitant]
     Active Substance: DOCUSATE SODIUM
  19. FENTANYL [Concomitant]
     Active Substance: FENTANYL
  20. HEPARIN [Concomitant]
     Active Substance: HEPARIN SODIUM
  21. INSULIN NOS [Concomitant]
     Active Substance: INSULIN NOS
  22. MAGNESIUM SULFATE [Concomitant]
     Active Substance: MAGNESIUM SULFATE
  23. PANTOPRAZOLE [Concomitant]
     Active Substance: PANTOPRAZOLE
  24. PIPERCILLIN-TRAZOBACTUM [Concomitant]
  25. ELECTROLYTES NOS [Concomitant]
     Active Substance: ELECTROLYTES NOS
  26. POTASSIUM CHLORIDE [Concomitant]
     Active Substance: POTASSIUM CHLORIDE
  27. PYRIDOXAL PHOSPHATE/MECOBALAMIN/(6S)-5-METHYLTETRAHYDROFOLATE GLUCOSAM [Concomitant]
  28. CLINDAMYCIN [Concomitant]
     Active Substance: CLINDAMYCIN
  29. GLYCOPYRROLATE [Concomitant]
     Active Substance: GLYCOPYRROLATE
  30. LIDOCAINE [Concomitant]
     Active Substance: LIDOCAINE
  31. HYDROMORPHONE [Concomitant]
     Active Substance: HYDROMORPHONE
  32. MIDAZOLAM [Concomitant]
     Active Substance: MIDAZOLAM
  33. NEOSTIGMINE. [Concomitant]
     Active Substance: NEOSTIGMINE METHYLSULFATE
  34. ONDANSETRON [Concomitant]
     Active Substance: ONDANSETRON
  35. VANCOMYCIN [Concomitant]
     Active Substance: VANCOMYCIN
  36. AMPICILLIN [Concomitant]
     Active Substance: AMPICILLIN
  37. CIPROFLOXACIN [Concomitant]
     Active Substance: CIPROFLOXACIN
  38. PRAVASTATIN [Concomitant]
     Active Substance: PRAVASTATIN
  39. TIZANIDINE [Concomitant]
     Active Substance: TIZANIDINE
  40. TRULICITY [Concomitant]
     Active Substance: DULAGLUTIDE
  41. VICTOZA [Concomitant]
     Active Substance: LIRAGLUTIDE
  42. CIALIS [Concomitant]
     Active Substance: TADALAFIL
  43. VIAGRA [Concomitant]
     Active Substance: SILDENAFIL CITRATE
  44. DIBUCAINE [Concomitant]
     Active Substance: DIBUCAINE
  45. BACLOFEN [Concomitant]
     Active Substance: BACLOFEN
  46. BENZONATATE [Concomitant]
     Active Substance: BENZONATATE
  47. NEOMYCIN/ACETIC ACID/DEXAMETHASONE [Concomitant]
  48. TRAMADOL [Concomitant]
     Active Substance: TRAMADOL
  49. OXYCODONE [Concomitant]
     Active Substance: OXYCODONE
  50. NIFEDIPINE [Concomitant]
     Active Substance: NIFEDIPINE
  51. LEVITRA [Concomitant]
     Active Substance: VARDENAFIL HYDROCHLORIDE
  52. HYDROCHLOROTHIAZIDE [Concomitant]
     Active Substance: HYDROCHLOROTHIAZIDE
  53. LANCET [Concomitant]
  54. GLIMEPIRIDE [Concomitant]
     Active Substance: GLIMEPIRIDE
  55. METRONIDAZOLE [Concomitant]
     Active Substance: METRONIDAZOLE
  56. LIRAGLUTIDE [Concomitant]
     Active Substance: LIRAGLUTIDE

REACTIONS (12)
  - Fournier^s gangrene [Unknown]
  - Sepsis [Unknown]
  - Perineal pain [Unknown]
  - Testicular pain [Unknown]
  - Rectal abscess [Unknown]
  - Scrotal swelling [Unknown]
  - Genital lesion [Unknown]
  - Debridement [Unknown]
  - Scrotal gangrene [Unknown]
  - Proctalgia [Unknown]
  - Pain [Unknown]
  - Emotional distress [Unknown]

NARRATIVE: CASE EVENT DATE: 20161126
